FAERS Safety Report 8320060-5 (Version None)
Quarter: 2012Q2

REPORT INFORMATION
  Report Type: 
  Country: None (occurrence: None)
  Receive Date: 20120427
  Receipt Date: 20120413
  Transmission Date: 20120825
  Serious: Yes (Other)
  Sender: FDA-Public Use
  Company Number: CHPA2012US009380

PATIENT
  Age: 51 Year
  Sex: Female

DRUGS (1)
  1. KERI ORIGINAL [Suspect]
     Indication: THERAPEUTIC SKIN CARE TOPICAL
     Dosage: HEAD TO TOE
     Route: 061
     Dates: start: 19770101

REACTIONS (6)
  - NAUSEA [None]
  - SJOGREN'S SYNDROME [None]
  - FOOD POISONING [None]
  - FIBROMYALGIA [None]
  - COLORECTAL CANCER STAGE IV [None]
  - MEMORY IMPAIRMENT [None]
